FAERS Safety Report 4735954-7 (Version None)
Quarter: 2005Q3

REPORT INFORMATION
  Report Type: 
  Country: None (occurrence: None)
  Receive Date: 20050805
  Receipt Date: 20050801
  Transmission Date: 20060218
  Serious: Yes (Hospitalization)
  Sender: FDA-Public Use
  Company Number: US-ABBOTT-05P-163-0307133-00

PATIENT
  Sex: Male
  Weight: 14.074 kg

DRUGS (1)
  1. DEPAKOTE [Suspect]
     Indication: CONVULSION
     Dosage: 2 EVERY MORNING, 3 EVERY NIGHT
     Route: 048
     Dates: start: 20050601, end: 20050729

REACTIONS (3)
  - BLOOD BILIRUBIN INCREASED [None]
  - HEPATIC FAILURE [None]
  - SHOCK [None]
